FAERS Safety Report 9532268 (Version 2)
Quarter: 2014Q1

REPORT INFORMATION
  Report Type: Spontaneous
  Country: US (occurrence: None)
  Receive Date: 20130503
  Receipt Date: 20130913
  Transmission Date: 20141002
  Serious: Yes (Other)
  Sender: FDA-Public Use
  Company Number: 1000043580

PATIENT
  Age: 71 Year
  Sex: Male

DRUGS (30)
  1. DALIRESP (ROFLUMILAST) (500 MICROGRAM, TABLETS) [Suspect]
     Indication: CHRONIC OBSTRUCTIVE PULMONARY DISEASE
     Route: 048
  2. ALBUTEROL SULFATE (SALBUTAMOL SULFATE) [Concomitant]
  3. AVAPRO (IRBESARTAN) [Concomitant]
  4. AXIRON (TESTOSTERONE) [Concomitant]
  5. BAYER CHILDREN^S ASPIRIN (ACETYLSALICYLIC ACID) [Concomitant]
  6. FLEXERIL (CYCLOBENZAPRINE) [Concomitant]
  7. FLONASE (FLUTICASONE PROPIONATE) [Concomitant]
  8. LEVITRA (VARDENAFIL HYDORCHLORIDE) [Concomitant]
  9. LORTAB (HYDROCODONE, ACETAMINOPHEN) [Concomitant]
  10. MICARDIS (TELMISARTAN) [Concomitant]
  11. MUSE (ALPROSTADIL) [Concomitant]
  12. NEXIUM (ESOMEPRAZOLE) [Concomitant]
  13. NITROGLYCERIN (GLYCERYL TRINITRATE) [Concomitant]
  14. PARICALCITOL [Concomitant]
  15. PLAVIX (CLOPIDOGREL BISULFATE) (CLOPIDOGREL BISULFATE) [Concomitant]
  16. QUALAQUIN (QUININE SULFATE) [Concomitant]
  17. SINGULAIR (MONTELUKAST SODIUM) TABLET [Concomitant]
  18. SPIRIVA (TIOTROPIUM BROMIDE) [Concomitant]
  19. TOPROL XL (METOPROLOL SUCCINATE) (100 MILLIGRAM) (METOPROLOL SUCCINATE) [Concomitant]
  20. ULORIC (FEBUXOSTAT) [Concomitant]
  21. VITAMIN D-3 WITH ALOE [Concomitant]
  22. VITAMIN B1 B6 B12 [Concomitant]
  23. XOPENEX (LEVOSALBUTAMOL HYDROCHLORIDE) [Concomitant]
  24. ZOCOR (SIMVASTATIN) [Concomitant]
  25. FLOVENT (FLUTICASONE PROPIONATE) [Concomitant]
  26. NEURONTIN (GABAPENTIN) [Concomitant]
  27. SCOPOLAMINE BASE [Concomitant]
  28. NYSTATIN [Concomitant]
  29. INSULIN [Concomitant]
  30. LANTUS (INSULIN GLARGINE) [Concomitant]

REACTIONS (3)
  - Suicidal ideation [None]
  - Depression [None]
  - Diarrhoea [None]
